FAERS Safety Report 4299688-8 (Version None)
Quarter: 2004Q1

REPORT INFORMATION
  Report Type: 
  Country: None (occurrence: None)
  Receive Date: 20040218
  Receipt Date: 20040218
  Transmission Date: 20041129
  Serious: No
  Sender: FDA-Public Use
  Company Number: None

PATIENT
  Age: 28 Year
  Sex: Female
  Weight: 148.7798 kg

DRUGS (2)
  1. HYDROXYCHLOROQUINE [Suspect]
     Indication: CONNECTIVE TISSUE DISORDER
     Dosage: 200 MG BID
     Dates: start: 20030908, end: 20030924
  2. NEXIUM [Concomitant]

REACTIONS (5)
  - DRUG INTOLERANCE [None]
  - NAUSEA [None]
  - PHARMACEUTICAL PRODUCT COMPLAINT [None]
  - VISION BLURRED [None]
  - VOMITING [None]
